FAERS Safety Report 10058109 (Version 2)
Quarter: 2014Q2

REPORT INFORMATION
  Report Type: Spontaneous
  Country: US (occurrence: US)
  Receive Date: 20140404
  Receipt Date: 20140513
  Transmission Date: 20141212
  Serious: No
  Sender: FDA-Public Use
  Company Number: US-PFIZER INC-2014091918

PATIENT
  Age: 67 Year
  Sex: Female

DRUGS (1)
  1. LIPITOR [Suspect]
     Dosage: UNK, 9 PILLS IN MORNING 5 IN EVENING

REACTIONS (2)
  - Blood cholesterol increased [Unknown]
  - Cardiac disorder [Unknown]
